FAERS Safety Report 5021560-6 (Version None)
Quarter: 2006Q2

REPORT INFORMATION
  Report Type: 
  Country: None (occurrence: None)
  Receive Date: 20060601
  Receipt Date: 20060309
  Transmission Date: 20061013
  Serious: No
  Sender: FDA-Public Use
  Company Number: 2006PV010005

PATIENT
  Age: 54 Year
  Sex: Male
  Weight: 90.7194 kg

DRUGS (5)
  1. BYETTA [Suspect]
     Indication: DIABETES MELLITUS NON-INSULIN-DEPENDENT
     Dosage: 5 MCG;BID;SC
     Route: 058
     Dates: start: 20060201
  2. HUMALOG [Concomitant]
  3. GLUCOTROL XL [Concomitant]
  4. LANTUS [Concomitant]
  5. AVANDAMET [Concomitant]

REACTIONS (2)
  - EARLY SATIETY [None]
  - NAUSEA [None]
